FAERS Safety Report 4715421-7 (Version None)
Quarter: 2005Q3

REPORT INFORMATION
  Report Type: 
  Country: None (occurrence: None)
  Receive Date: 20050715
  Receipt Date: 20050715
  Transmission Date: 20060218
  Serious: Yes (Other)
  Sender: FDA-Public Use
  Company Number: None

PATIENT
  Age: 55 Year
  Sex: Female

DRUGS (6)
  1. HYDROXYCHLOROQUINE 200 MG SANDO RPH-RGD-EOT [Suspect]
     Indication: SYSTEMIC LUPUS ERYTHEMATOSUS
     Dosage: 200 MG PO BID
     Route: 048
     Dates: start: 20050304, end: 20050311
  2. FUROSEMIDE [Concomitant]
  3. LORAZEPAM [Concomitant]
  4. DARVOCET [Concomitant]
  5. SKELAXIN [Concomitant]
  6. HYZAAR [Concomitant]

REACTIONS (4)
  - DRUG EFFECT DECREASED [None]
  - NAUSEA [None]
  - STOMACH DISCOMFORT [None]
  - THERAPEUTIC RESPONSE UNEXPECTED WITH DRUG SUBSTITUTION [None]
